FAERS Safety Report 10856115 (Version 3)
Quarter: 2015Q1

REPORT INFORMATION
  Report Type: Report from Study
  Country: BR (occurrence: BR)
  Receive Date: 20150223
  Receipt Date: 20150319
  Transmission Date: 20150721
  Serious: Yes (Other)
  Sender: FDA-Public Use
  Company Number: BR-ABBVIE-14K-020-1260069-00

PATIENT
  Age: 45 Year
  Sex: Female
  Weight: 81 kg

DRUGS (3)
  1. HUMIRA [Suspect]
     Active Substance: ADALIMUMAB
     Route: 058
  2. METHOTREXATE [Concomitant]
     Active Substance: METHOTREXATE
     Indication: SPONDYLITIS
     Route: 048
     Dates: start: 20140421
  3. HUMIRA [Suspect]
     Active Substance: ADALIMUMAB
     Indication: ANKYLOSING SPONDYLITIS
     Route: 058
     Dates: start: 20110109, end: 2012

REACTIONS (11)
  - Tendon rupture [Unknown]
  - Chondropathy [Unknown]
  - Joint lock [Recovering/Resolving]
  - Injection site pain [Not Recovered/Not Resolved]
  - Cough [Recovered/Resolved]
  - Osteoarthritis [Unknown]
  - Tendon disorder [Unknown]
  - Injection site swelling [Not Recovered/Not Resolved]
  - Joint effusion [Unknown]
  - Injection site erythema [Not Recovered/Not Resolved]
  - Bursa disorder [Unknown]

NARRATIVE: CASE EVENT DATE: 20110919
